FAERS Safety Report 9362983 (Version 1)
Quarter: 2013Q2

REPORT INFORMATION
  Report Type: Spontaneous
  Country: US (occurrence: US)
  Receive Date: 20130624
  Receipt Date: 20130624
  Transmission Date: 20140414
  Serious: No
  Sender: FDA-Public Use
  Company Number: US-B.I. PHARMACEUTICALS,INC./RIDGEFIELD-2013-BI-17446BP

PATIENT
  Age: 75 Year
  Sex: Female

DRUGS (9)
  1. SPIRIVA [Suspect]
     Indication: CHRONIC OBSTRUCTIVE PULMONARY DISEASE
     Dosage: 18 MCG
     Route: 055
     Dates: start: 201305
  2. DILANTIN [Concomitant]
     Indication: EPILEPSY
     Dosage: 100 MG
     Route: 048
  3. DILANTIN [Concomitant]
     Dosage: 50 MG
     Route: 048
  4. PHENOBARBITAL [Concomitant]
     Indication: EPILEPSY
     Dosage: 60 MG
     Route: 048
  5. WARFARIN [Concomitant]
     Indication: ATRIAL FIBRILLATION
     Dosage: 2.5 MG
     Route: 048
  6. WARFARIN [Concomitant]
     Dosage: 1 MG
     Route: 048
  7. FUROSEMIDE [Concomitant]
     Dosage: 40 MG
     Route: 048
  8. DEXILANT [Concomitant]
     Indication: GASTROOESOPHAGEAL REFLUX DISEASE
     Route: 048
  9. CARDIZEM [Concomitant]
     Route: 048

REACTIONS (3)
  - Laryngitis [Not Recovered/Not Resolved]
  - Dysphonia [Not Recovered/Not Resolved]
  - Dyspnoea [Recovered/Resolved]
